FAERS Safety Report 9557837 (Version 1)
Quarter: 2013Q3

REPORT INFORMATION
  Report Type: Spontaneous
  Country: US (occurrence: None)
  Receive Date: 20130724
  Receipt Date: 20130724
  Transmission Date: 20140515
  Serious: Yes (Other)
  Sender: FDA-Public Use
  Company Number: PHEH2013US005443

PATIENT
  Age: 53 Year
  Sex: Male

DRUGS (8)
  1. GILENYA (FINGOLIMOD) CAPSULE, 0.5 MG [Suspect]
     Indication: MULTIPLE SCLEROSIS
     Route: 048
     Dates: start: 20130227
  2. BACLOFEN (BACLOFEN) [Concomitant]
  3. REQUIP (ROPINIROLE HYDROCHLORIDE) [Concomitant]
  4. PAXIL (PAROXETINE HYDROCHLORIDE) [Concomitant]
  5. RANITIDINE (RANITIDINE) [Concomitant]
  6. TRAZODONE (TRAZODONE) [Concomitant]
  7. TIZANIDINE (TIZANIDINE) [Concomitant]
  8. AMANTADINE (AMANTADINE) [Concomitant]

REACTIONS (2)
  - Road traffic accident [None]
  - Dysstasia [None]
